FAERS Safety Report 22521822 (Version 1)
Quarter: 2023Q2

REPORT INFORMATION
  Report Type: Spontaneous
  Country: CA (occurrence: CA)
  Receive Date: 20230605
  Receipt Date: 20230605
  Transmission Date: 20230721
  Serious: Yes (Hospitalization, Other)
  Sender: FDA-Public Use
  Company Number: CA-002147023-NVSC2023CA120555

PATIENT
  Age: 72 Year
  Sex: Female

DRUGS (1)
  1. QUETIAPINE FUMARATE [Suspect]
     Active Substance: QUETIAPINE FUMARATE
     Indication: Anxiety
     Dosage: 600 MG, QD
     Route: 048

REACTIONS (7)
  - Bipolar disorder [Unknown]
  - Cardiac failure [Unknown]
  - Cerebrovascular accident [Unknown]
  - Epilepsy [Unknown]
  - Myocardial infarction [Unknown]
  - Hypertension [Unknown]
  - Diabetes mellitus [Unknown]
